FAERS Safety Report 4545054-7 (Version None)
Quarter: 2005Q1

REPORT INFORMATION
  Report Type: 
  Country: None (occurrence: None)
  Receive Date: 20050103
  Receipt Date: 20041221
  Transmission Date: 20050727
  Serious: Yes (Other)
  Sender: FDA-Public Use
  Company Number: 2004118920

PATIENT
  Age: 1 Year
  Sex: Male

DRUGS (1)
  1. NORVASC [Suspect]
     Indication: ILL-DEFINED DISORDER
     Dosage: 10 MG (10 MG, 1 IN 1 TOTAL), ORAL
     Route: 048
     Dates: start: 20041221, end: 20041221

REACTIONS (1)
  - ACCIDENTAL EXPOSURE [None]
